FAERS Safety Report 4292047-3 (Version None)
Quarter: 2004Q1

REPORT INFORMATION
  Report Type: 
  Country: None (occurrence: None)
  Receive Date: 20040126
  Receipt Date: 20031105
  Transmission Date: 20041129
  Serious: No
  Sender: FDA-Public Use
  Company Number: US_000236501

PATIENT
  Age: 71 Year
  Sex: Female
  Weight: 56 kg

DRUGS (2)
  1. FORTEO [Suspect]
     Indication: OSTEOPOROSIS
     Dosage: 20 UG DAY
     Dates: start: 20030509
  2. EVISTA [Suspect]
     Indication: OSTEOPOROSIS
     Dosage: 60 MG/1 DAY

REACTIONS (12)
  - ABDOMINAL DISCOMFORT [None]
  - ABDOMINAL DISTENSION [None]
  - ARTHRALGIA [None]
  - BACK PAIN [None]
  - BONE PAIN [None]
  - BURNING SENSATION [None]
  - BUTTOCK PAIN [None]
  - CHEST WALL PAIN [None]
  - FEELING ABNORMAL [None]
  - FLUSHING [None]
  - INJECTION SITE PAIN [None]
  - PAIN [None]
